FAERS Safety Report 6210805-2 (Version None)
Quarter: 2009Q2

REPORT INFORMATION
  Report Type: 
  Country: None (occurrence: None)
  Receive Date: 20090601
  Receipt Date: 20090518
  Transmission Date: 20091009
  Serious: Yes (Other)
  Sender: FDA-Public Use
  Company Number: AT-PFIZER INC-2008088462

PATIENT
  Age: 49 Year

DRUGS (1)
  1. SUTENT [Suspect]
     Dosage: 50 MG, 1X/DAY, 4/2 SCHEDULE
     Route: 048
     Dates: start: 20060301

REACTIONS (7)
  - CARDIAC ENZYMES INCREASED [None]
  - CARDIAC FAILURE [None]
  - EJECTION FRACTION DECREASED [None]
  - ELECTROCARDIOGRAM CHANGE [None]
  - HYPOTENSION [None]
  - PERICARDIAL EFFUSION [None]
  - PLEURAL EFFUSION [None]
